FAERS Safety Report 11554504 (Version 1)
Quarter: 2015Q3

REPORT INFORMATION
  Report Type: Spontaneous
  Country: US (occurrence: US)
  Receive Date: 20150925
  Receipt Date: 20150925
  Transmission Date: 20151125
  Serious: Yes (Other)
  Sender: FDA-Public Use
  Company Number: US-PFIZER INC-2015317925

PATIENT

DRUGS (1)
  1. EFFEXOR XR [Suspect]
     Active Substance: VENLAFAXINE HYDROCHLORIDE
     Indication: BACK PAIN
     Dosage: 300 MG, DAILY (2 X 150MG CAPSULES EVERY NIGHT BEFORE BED)

REACTIONS (3)
  - Drug ineffective for unapproved indication [Unknown]
  - Neoplasm malignant [Unknown]
  - Road traffic accident [Unknown]
